FAERS Safety Report 15247922 (Version 1)
Quarter: 2018Q3

REPORT INFORMATION
  Report Type: Spontaneous
  Country: US (occurrence: US)
  Receive Date: 20180807
  Receipt Date: 20180807
  Transmission Date: 20181010
  Serious: No
  Sender: FDA-Public Use
  Company Number: US-BIOGEN-2018BI00617756

PATIENT
  Age: 48 Year
  Sex: Female

DRUGS (1)
  1. TYSABRI [Suspect]
     Active Substance: NATALIZUMAB
     Indication: MULTIPLE SCLEROSIS
     Route: 065
     Dates: start: 20080505

REACTIONS (4)
  - Paraesthesia [Unknown]
  - Mental impairment [Unknown]
  - Discomfort [Unknown]
  - Limb discomfort [Unknown]

NARRATIVE: CASE EVENT DATE: 20180727
